FAERS Safety Report 8132748-X (Version None)
Quarter: 2012Q1

REPORT INFORMATION
  Report Type: 
  Country: None (occurrence: None)
  Receive Date: 20120207
  Receipt Date: 20120131
  Transmission Date: 20120608
  Serious: Yes (Hospitalization)
  Sender: FDA-Public Use
  Company Number: AUR-APL-2012-00583

PATIENT
  Age: 85 Year
  Sex: Female

DRUGS (9)
  1. CLARITHROMYCIN [Suspect]
     Indication: BRONCHOPNEUMONIA
     Dosage: (1000 MG, 1 D), ORAL
     Route: 048
     Dates: start: 20110824, end: 20110825
  2. ATORVASTATIN [Concomitant]
  3. OMEPRAZOLE [Concomitant]
  4. PRITOR (LACIDIPINE) [Concomitant]
  5. CEFTRIAXONE [Suspect]
     Indication: BRONCHOPNEUMONIA
     Dosage: 1 (1, 1 IN 1 D), INTRAVENOUS
     Route: 042
     Dates: start: 20110813, end: 20110825
  6. PIPERACILLIN AND TAZOBACTAM [Suspect]
     Indication: BRONCHOPNEUMONIA
     Dosage: 1 (1, 1 IN 1 D), INTRAVENOUS
     Route: 042
     Dates: start: 20110813, end: 20110825
  7. FUROSEMIDE [Concomitant]
  8. TICLID [Concomitant]
  9. CARVEDILOL [Concomitant]

REACTIONS (2)
  - MEGACOLON [None]
  - CLOSTRIDIUM COLITIS [None]
